FAERS Safety Report 12439953 (Version 1)
Quarter: 2016Q2

REPORT INFORMATION
  Report Type: Report from Study
  Country: JP (occurrence: JP)
  Receive Date: 20160606
  Receipt Date: 20160606
  Transmission Date: 20160815
  Serious: Yes (Death, Life-Threatening)
  Sender: FDA-Public Use
  Company Number: JP-SA-2016SA104985

PATIENT
  Age: 51 Year
  Sex: Male
  Weight: 63.6 kg

DRUGS (20)
  1. PENTAGIN [Concomitant]
     Active Substance: PENTAZOCINE HYDROCHLORIDE
     Indication: GRAFT VERSUS HOST DISEASE
     Route: 042
     Dates: start: 20120603, end: 20120716
  2. MORPHINE HYDROCHLORIDE [Concomitant]
     Active Substance: MORPHINE HYDROCHLORIDE
     Indication: GRAFT VERSUS HOST DISEASE
     Route: 042
     Dates: start: 20120716, end: 20120723
  3. THYMOGLOBULINE [Suspect]
     Active Substance: LAPINE T-LYMPHOCYTE IMMUNE GLOBULIN
     Indication: BONE MARROW CONDITIONING REGIMEN
     Dosage: OVER 6 HOURS
     Route: 042
     Dates: start: 20120712, end: 20120712
  4. PRIMPERAN [Concomitant]
     Active Substance: METOCLOPRAMIDE HYDROCHLORIDE
     Indication: GRAFT VERSUS HOST DISEASE
     Route: 042
     Dates: start: 20120705, end: 20120707
  5. KENKETU ALBUMIN [Concomitant]
     Indication: GRAFT VERSUS HOST DISEASE
     Route: 042
     Dates: start: 20120521, end: 20120723
  6. GEBEN [Concomitant]
     Active Substance: SILVER SULFADIAZINE
     Indication: SKIN DISORDER
     Route: 061
     Dates: start: 20120622, end: 20120723
  7. DENOSINE [Suspect]
     Active Substance: GANCICLOVIR
     Indication: CYTOMEGALOVIRUS VIRAEMIA
     Route: 065
     Dates: start: 20120704, end: 20120722
  8. HUMULIN R [Concomitant]
     Active Substance: INSULIN HUMAN
     Indication: HYPERGLYCAEMIA
     Dates: start: 20120514, end: 20120723
  9. MINERALS NOS [Concomitant]
     Active Substance: MINERALS
     Indication: GRAFT VERSUS HOST DISEASE
     Route: 042
     Dates: start: 20120531, end: 20120721
  10. ATARAX-P [Concomitant]
     Active Substance: HYDROXYZINE HYDROCHLORIDE
     Indication: INSOMNIA
     Route: 042
     Dates: start: 20120605, end: 20120716
  11. FULCALIQ [Concomitant]
     Active Substance: AMINO ACIDS\CARBOHYDRATES\ELECTROLYTES NOS\VITAMINS
     Indication: GRAFT VERSUS HOST DISEASE
     Route: 042
     Dates: start: 20120723, end: 20120723
  12. THYMOGLOBULINE [Suspect]
     Active Substance: LAPINE T-LYMPHOCYTE IMMUNE GLOBULIN
     Indication: BONE MARROW CONDITIONING REGIMEN
     Dosage: OVER 6 HOURS
     Route: 042
     Dates: start: 20120705, end: 20120705
  13. PROGRAF [Concomitant]
     Active Substance: TACROLIMUS\TACROLIMUS ANHYDROUS
     Indication: GRAFT VERSUS HOST DISEASE
     Route: 042
     Dates: start: 20120215, end: 20120723
  14. INTRALIPID [Concomitant]
     Active Substance: EGG PHOSPHOLIPIDS\GLYCERIN\SOYBEAN OIL
     Indication: GRAFT VERSUS HOST DISEASE
     Route: 042
     Dates: start: 20120531, end: 20120722
  15. CILASTATIN/IMIPENEM [Concomitant]
     Indication: INFECTION
     Route: 042
     Dates: start: 20120625, end: 20120722
  16. PREDONINE [Suspect]
     Active Substance: PREDNISOLONE\PREDNISOLONE ACETATE\PREDNISOLONE SODIUM SUCCINATE
     Indication: GRAFT VERSUS HOST DISEASE
     Route: 065
     Dates: start: 20120530, end: 20120723
  17. FAMOTIDINE. [Concomitant]
     Active Substance: FAMOTIDINE
     Indication: PROPHYLAXIS
     Route: 042
     Dates: start: 20120610, end: 20120723
  18. FUNGUARD [Concomitant]
     Active Substance: MICAFUNGIN SODIUM
     Indication: PROPHYLAXIS
     Route: 042
     Dates: start: 20120705, end: 20120723
  19. THYMOGLOBULINE [Suspect]
     Active Substance: LAPINE T-LYMPHOCYTE IMMUNE GLOBULIN
     Indication: BONE MARROW CONDITIONING REGIMEN
     Route: 042
     Dates: start: 20120705, end: 20120705
  20. NEOPAREN NO.2 [Concomitant]
     Indication: GRAFT VERSUS HOST DISEASE
     Route: 042
     Dates: start: 20120610, end: 20120722

REACTIONS (9)
  - Shock [Fatal]
  - Respiratory tract infection [Fatal]
  - Respiratory failure [Not Recovered/Not Resolved]
  - Hypersensitivity [Recovered/Resolved]
  - Hypersensitivity [Recovered/Resolved]
  - Hypogammaglobulinaemia [Recovered/Resolved]
  - Graft versus host disease [Fatal]
  - Cytomegalovirus viraemia [Not Recovered/Not Resolved]
  - Neutrophil count decreased [Recovered/Resolved]

NARRATIVE: CASE EVENT DATE: 20120704
